FAERS Safety Report 10025467 (Version 1)
Quarter: 2014Q1

REPORT INFORMATION
  Report Type: Spontaneous
  Country: DE (occurrence: DE)
  Receive Date: 20140320
  Receipt Date: 20140320
  Transmission Date: 20141002
  Serious: Yes (Other)
  Sender: FDA-Public Use
  Company Number: DE-ROXANE LABORATORIES, INC.-2014-RO-00426RO

PATIENT
  Sex: Female

DRUGS (1)
  1. AZATHIOPRINE [Suspect]
     Indication: LUPUS NEPHRITIS
     Route: 065

REACTIONS (1)
  - Proteinuria [Unknown]
